FAERS Safety Report 8301178-X (Version None)
Quarter: 2012Q2

REPORT INFORMATION
  Report Type: 
  Country: None (occurrence: None)
  Receive Date: 20120420
  Receipt Date: 20120416
  Transmission Date: 20120825
  Serious: Yes (Other)
  Sender: FDA-Public Use
  Company Number: PHEH2012US007526

PATIENT
  Sex: Female
  Weight: 85.261 kg

DRUGS (5)
  1. CALCIUM [Concomitant]
     Dosage: UNK UKN, QD
     Route: 048
     Dates: start: 20070101
  2. TRIAMTERENE AND HYDROCHLOROTHIAZIDE [Concomitant]
     Indication: HYPERTENSION
     Dosage: UNK UKN, QD
     Route: 048
     Dates: start: 20100101
  3. RECLAST [Suspect]
     Dosage: UNK UKN, UNK
     Route: 042
  4. VITAMIN D [Concomitant]
     Dosage: UNK UKN, QD
     Route: 048
     Dates: start: 20070101
  5. MULTI-VITAMINS [Concomitant]

REACTIONS (2)
  - FRACTURE [None]
  - SPINAL FRACTURE [None]
